FAERS Safety Report 12717644 (Version 3)
Quarter: 2017Q1

REPORT INFORMATION
  Report Type: Spontaneous
  Country: US (occurrence: US)
  Receive Date: 20160906
  Receipt Date: 20170324
  Transmission Date: 20170428
  Serious: Yes (Hospitalization)
  Sender: FDA-Public Use
  Company Number: US-BAYER-2016-171687

PATIENT
  Age: 29 Year
  Sex: Female

DRUGS (1)
  1. MIRENA [Suspect]
     Active Substance: LEVONORGESTREL
     Indication: CONTRACEPTION
     Dosage: 20 MCG/24HR, CONT
     Route: 015
     Dates: start: 20100715, end: 20140912

REACTIONS (13)
  - Headache [Recovering/Resolving]
  - Vision blurred [Recovering/Resolving]
  - Tinnitus [Recovering/Resolving]
  - Neck pain [Recovering/Resolving]
  - Benign intracranial hypertension [Recovering/Resolving]
  - Vaginal haemorrhage [None]
  - Visual field defect [Recovering/Resolving]
  - Diplopia [Recovering/Resolving]
  - Amnesia [Recovering/Resolving]
  - Musculoskeletal pain [Recovering/Resolving]
  - Night blindness [Recovering/Resolving]
  - Weight increased [None]
  - Dizziness [Recovering/Resolving]

NARRATIVE: CASE EVENT DATE: 2010
